FAERS Safety Report 13471899 (Version 2)
Quarter: 2017Q4

REPORT INFORMATION
  Report Type: Spontaneous
  Country: US (occurrence: US)
  Receive Date: 20170424
  Receipt Date: 20171207
  Transmission Date: 20180320
  Serious: No
  Sender: FDA-Public Use
  Company Number: US-PFIZER INC-2017175335

PATIENT
  Age: 55 Year
  Sex: Female

DRUGS (1)
  1. XELJANZ [Suspect]
     Active Substance: TOFACITINIB CITRATE
     Dosage: 5 MG, UNK
     Dates: start: 201702

REACTIONS (5)
  - Rhinorrhoea [Unknown]
  - Fatigue [Unknown]
  - Sinusitis [Unknown]
  - Nasal congestion [Unknown]
  - Oropharyngeal pain [Unknown]
